FAERS Safety Report 8600923 (Version 3)
Quarter: 2015Q3

REPORT INFORMATION
  Report Type: Spontaneous
  Country: US (occurrence: US)
  Receive Date: 20120606
  Receipt Date: 20150918
  Transmission Date: 20151125
  Serious: Yes (Other)
  Sender: FDA-Public Use
  Company Number: US-ASTRAZENECA-2012SE33296

PATIENT
  Age: 61 Year
  Sex: Female
  Weight: 81.6 kg

DRUGS (2)
  1. NEXIUM [Suspect]
     Active Substance: ESOMEPRAZOLE MAGNESIUM
     Indication: GASTROOESOPHAGEAL REFLUX DISEASE
     Route: 048
  2. NEXIUM [Suspect]
     Active Substance: ESOMEPRAZOLE MAGNESIUM
     Indication: GASTROOESOPHAGEAL REFLUX DISEASE
     Route: 048

REACTIONS (11)
  - Aphonia [Unknown]
  - Dyspnoea [Unknown]
  - Suture related complication [Unknown]
  - Bronchitis [Unknown]
  - Cough [Unknown]
  - Ear disorder [Unknown]
  - Intentional product misuse [Unknown]
  - Weight decreased [Unknown]
  - Stress [Unknown]
  - Nasal disorder [Unknown]
  - Multiple allergies [Unknown]

NARRATIVE: CASE EVENT DATE: 2012
